FAERS Safety Report 13559378 (Version 1)
Quarter: 2017Q2

REPORT INFORMATION
  Report Type: Spontaneous
  Country: US (occurrence: US)
  Receive Date: 20170518
  Receipt Date: 20170518
  Transmission Date: 20170830
  Serious: No
  Sender: FDA-Public Use
  Company Number: US-TEVA-750828ACC

PATIENT
  Sex: Female

DRUGS (1)
  1. METFORMIN EXTENDED RELEASE [Suspect]
     Active Substance: METFORMIN HYDROCHLORIDE
     Dates: start: 2016

REACTIONS (2)
  - Abdominal discomfort [Unknown]
  - Diarrhoea [Unknown]

NARRATIVE: CASE EVENT DATE: 20170216
